FAERS Safety Report 18967438 (Version 1)
Quarter: 2021Q1

REPORT INFORMATION
  Report Type: Spontaneous
  Country: IT (occurrence: IT)
  Receive Date: 20210304
  Receipt Date: 20210304
  Transmission Date: 20210420
  Serious: Yes (Other)
  Sender: FDA-Public Use
  Company Number: IT-AUROBINDO-AUR-APL-2019-051516

PATIENT
  Age: 68 Year
  Sex: Female

DRUGS (5)
  1. ZEVALIN [Suspect]
     Active Substance: IBRITUMOMAB TIUXETAN
     Indication: CENTRAL NERVOUS SYSTEM LYMPHOMA
     Dosage: 0.4 MILLICURIE PER KILOGRAM
     Route: 042
     Dates: start: 2005, end: 2005
  2. RITUXIMAB. [Concomitant]
     Active Substance: RITUXIMAB
     Indication: CENTRAL NERVOUS SYSTEM LYMPHOMA
     Dosage: 250 MILLIGRAM/SQ. METER
     Route: 042
     Dates: start: 2005, end: 2005
  3. TEMOZOLOMIDE. [Concomitant]
     Active Substance: TEMOZOLOMIDE
     Indication: CENTRAL NERVOUS SYSTEM LYMPHOMA
     Dosage: UNK
     Route: 065
  4. ZEVALIN [Suspect]
     Active Substance: IBRITUMOMAB TIUXETAN
     Indication: NON-HODGKIN^S LYMPHOMA
     Dosage: 5 MILLICURIE
     Route: 042
     Dates: start: 2005, end: 2005
  5. ZEVALIN [Suspect]
     Active Substance: IBRITUMOMAB TIUXETAN
     Dosage: 5.5 UNK, CYCLICAL
     Route: 042

REACTIONS (1)
  - Myelosuppression [Recovered/Resolved]
